FAERS Safety Report 14617703 (Version 5)
Quarter: 2018Q3

REPORT INFORMATION
  Report Type: Spontaneous
  Country: US (occurrence: US)
  Receive Date: 20180309
  Receipt Date: 20180911
  Transmission Date: 20181010
  Serious: No
  Sender: FDA-Public Use
  Company Number: PHEH2018US007717

PATIENT
  Sex: Male

DRUGS (2)
  1. BRIMONIDINE [Suspect]
     Active Substance: BRIMONIDINE TARTRATE
     Indication: PRODUCT USED FOR UNKNOWN INDICATION
     Dosage: 0.2 %, BID
     Route: 047
  2. LATANOPROST. [Concomitant]
     Active Substance: LATANOPROST
     Indication: GLAUCOMA
     Dosage: 0.005 %, QD (AT NIGHT)
     Route: 047

REACTIONS (5)
  - Product deposit [Unknown]
  - Eyelid margin crusting [Unknown]
  - Eye discharge [Not Recovered/Not Resolved]
  - Eye pain [Unknown]
  - Superficial injury of eye [Unknown]
